FAERS Safety Report 14424255 (Version 1)
Quarter: 2018Q1

REPORT INFORMATION
  Report Type: Spontaneous
  Country: US (occurrence: US)
  Receive Date: 20180123
  Receipt Date: 20180123
  Transmission Date: 20180509
  Serious: Yes (Hospitalization)
  Sender: FDA-Public Use
  Company Number: US-UNICHEM PHARMACEUTICALS (USA) INC-UCM201801-000007

PATIENT
  Age: 68 Year
  Sex: Male

DRUGS (6)
  1. DOBUTAMINE [Concomitant]
     Active Substance: DOBUTAMINE\DOBUTAMINE HYDROCHLORIDE
  2. AMLODIPINE [Suspect]
     Active Substance: AMLODIPINE BESYLATE
  3. INSULIN [Concomitant]
     Active Substance: INSULIN NOS
     Route: 041
  4. NOREPINEPHRINE. [Concomitant]
     Active Substance: NOREPINEPHRINE
  5. WARFARIN [Suspect]
     Active Substance: WARFARIN
  6. GABAPENTIN. [Suspect]
     Active Substance: GABAPENTIN

REACTIONS (2)
  - Toxicity to various agents [Recovering/Resolving]
  - Circulatory collapse [Recovering/Resolving]
